FAERS Safety Report 25322467 (Version 1)
Quarter: 2025Q2

REPORT INFORMATION
  Report Type: Spontaneous
  Country: US (occurrence: US)
  Receive Date: 20250516
  Receipt Date: 20250516
  Transmission Date: 20250717
  Serious: No
  Sender: STRIDES
  Company Number: US-STRIDES ARCOLAB LIMITED-2024SP007409

PATIENT
  Sex: Female

DRUGS (26)
  1. MINOCYCLINE [Suspect]
     Active Substance: MINOCYCLINE HYDROCHLORIDE
     Indication: Staphylococcal infection
     Route: 065
  2. MINOCYCLINE [Suspect]
     Active Substance: MINOCYCLINE HYDROCHLORIDE
     Indication: Beta haemolytic streptococcal infection
  3. VANCOMYCIN [Suspect]
     Active Substance: VANCOMYCIN
     Indication: Acinetobacter infection
     Route: 065
  4. VANCOMYCIN [Suspect]
     Active Substance: VANCOMYCIN
     Indication: Enterococcal infection
  5. CARBAMAZEPINE [Concomitant]
     Active Substance: CARBAMAZEPINE
     Indication: Trigeminal neuralgia
     Route: 065
  6. CARBAMAZEPINE [Concomitant]
     Active Substance: CARBAMAZEPINE
     Route: 065
  7. HEPARIN [Concomitant]
     Active Substance: HEPARIN SODIUM
     Indication: Product used for unknown indication
     Route: 065
  8. PREDNISONE [Concomitant]
     Active Substance: PREDNISONE
     Indication: Benign familial pemphigus
     Route: 065
  9. PREDNISONE [Concomitant]
     Active Substance: PREDNISONE
     Route: 065
  10. PREDNISONE [Concomitant]
     Active Substance: PREDNISONE
     Route: 065
  11. CLOBETASOL [Concomitant]
     Active Substance: CLOBETASOL
     Indication: Benign familial pemphigus
     Route: 065
  12. COTRIMOXAZOLE [Concomitant]
     Active Substance: SULFAMETHOXAZOLE\TRIMETHOPRIM
     Indication: Benign familial pemphigus
     Route: 065
  13. ADALIMUMAB [Concomitant]
     Active Substance: ADALIMUMAB
     Indication: Benign familial pemphigus
     Route: 065
  14. GENTAMICIN [Concomitant]
     Active Substance: GENTAMICIN
     Indication: Benign familial pemphigus
     Route: 065
  15. GLYCOPYRROLATE [Concomitant]
     Active Substance: GLYCOPYRROLATE
     Indication: Benign familial pemphigus
     Route: 065
  16. DOXYCYCLINE [Concomitant]
     Active Substance: DOXYCYCLINE
     Indication: Evidence based treatment
     Route: 065
  17. DOXYCYCLINE [Concomitant]
     Active Substance: DOXYCYCLINE
     Indication: Benign familial pemphigus
  18. CEFEPIME [Concomitant]
     Active Substance: CEFEPIME HYDROCHLORIDE
     Indication: Evidence based treatment
     Route: 065
  19. CEFEPIME [Concomitant]
     Active Substance: CEFEPIME HYDROCHLORIDE
     Indication: Benign familial pemphigus
  20. ACYCLOVIR [Concomitant]
     Active Substance: ACYCLOVIR
     Indication: Evidence based treatment
     Route: 065
  21. ACYCLOVIR [Concomitant]
     Active Substance: ACYCLOVIR
     Indication: Benign familial pemphigus
     Route: 065
  22. TRIAMCINOLONE [Concomitant]
     Active Substance: TRIAMCINOLONE
     Indication: Benign familial pemphigus
     Route: 065
  23. PIPERACILLIN SODIUM\TAZOBACTAM SODIUM [Concomitant]
     Active Substance: PIPERACILLIN SODIUM\TAZOBACTAM SODIUM
     Indication: Benign familial pemphigus
     Route: 065
  24. METHYLPREDNISOLONE [Concomitant]
     Active Substance: METHYLPREDNISOLONE
     Indication: Benign familial pemphigus
     Route: 042
  25. ACITRETIN [Concomitant]
     Active Substance: ACITRETIN
     Indication: Benign familial pemphigus
     Route: 048
  26. CEFAZOLIN [Concomitant]
     Active Substance: CEFAZOLIN
     Indication: Benign familial pemphigus
     Route: 065

REACTIONS (1)
  - Off label use [Unknown]
